FAERS Safety Report 5537051-X (Version None)
Quarter: 2007Q4

REPORT INFORMATION
  Report Type: 
  Country: None (occurrence: None)
  Receive Date: 20071207
  Receipt Date: 20071128
  Transmission Date: 20080405
  Serious: Yes (Death)
  Sender: FDA-Public Use
  Company Number: AT-BAYER-200717241GPV

PATIENT
  Age: 93 Year
  Sex: Male

DRUGS (1)
  1. AVELOX [Suspect]
     Indication: PNEUMONIA
     Route: 065

REACTIONS (2)
  - DIARRHOEA [None]
  - PSEUDOMEMBRANOUS COLITIS [None]
